FAERS Safety Report 5745784-5 (Version None)
Quarter: 2008Q2

REPORT INFORMATION
  Report Type: 
  Country: None (occurrence: None)
  Receive Date: 20080521
  Receipt Date: 20080518
  Transmission Date: 20081010
  Serious: Yes (Other)
  Sender: FDA-Public Use
  Company Number: US-PFIZER INC-2008042344

PATIENT
  Sex: Male

DRUGS (1)
  1. VIAGRA [Suspect]

REACTIONS (5)
  - ERECTILE DYSFUNCTION [None]
  - ERECTION INCREASED [None]
  - PAINFUL ERECTION [None]
  - PENIS DISORDER [None]
  - SKIN DISCOLOURATION [None]
